FAERS Safety Report 19505310 (Version 2)
Quarter: 2021Q3

REPORT INFORMATION
  Report Type: Spontaneous
  Country: US (occurrence: US)
  Receive Date: 20210708
  Receipt Date: 20210913
  Transmission Date: 20211014
  Serious: No
  Sender: FDA-Public Use
  Company Number: US-SA-2021SA223928

PATIENT
  Age: 70 Year
  Sex: Female

DRUGS (1)
  1. DUPIXENT [Suspect]
     Active Substance: DUPILUMAB
     Indication: ASTHMA
     Dosage: 300 MG, QOW
     Route: 058
     Dates: start: 20210504, end: 2021

REACTIONS (5)
  - Product use issue [Unknown]
  - Visual impairment [Unknown]
  - Alopecia [Unknown]
  - Rhinorrhoea [Unknown]
  - Tonsillar hypertrophy [Unknown]

NARRATIVE: CASE EVENT DATE: 20210504
